FAERS Safety Report 4558033-0 (Version None)
Quarter: 2005Q1

REPORT INFORMATION
  Report Type: 
  Country: None (occurrence: None)
  Receive Date: 20050121
  Receipt Date: 20040615
  Transmission Date: 20050727
  Serious: Yes (Hospitalization)
  Sender: FDA-Public Use
  Company Number: US-BRISTOL-MYERS SQUIBB COMPANY-12615050

PATIENT
  Age: 37 Year
  Sex: Male

DRUGS (6)
  1. SERZONE [Suspect]
     Indication: DEPRESSION
     Dosage: INITIAL DOSE 100 MG DAILY (HS)
     Route: 048
     Dates: start: 19990301, end: 19990401
  2. PROZAC [Concomitant]
  3. DEPAKOTE [Concomitant]
  4. KLONOPIN [Concomitant]
  5. DILANTIN [Concomitant]
  6. NEURONTIN [Concomitant]

REACTIONS (1)
  - HEPATITIS [None]
